FAERS Safety Report 17660785 (Version 1)
Quarter: 2020Q2

REPORT INFORMATION
  Report Type: Spontaneous
  Country: US (occurrence: US)
  Receive Date: 20200410
  Receipt Date: 20200410
  Transmission Date: 20200713
  Serious: Yes (Death)
  Sender: FDA-Public Use
  Company Number: None

PATIENT
  Age: 91 Year
  Sex: Female

DRUGS (19)
  1. DIGOXIN. [Concomitant]
     Active Substance: DIGOXIN
  2. NASALIDE [Concomitant]
     Active Substance: FLUNISOLIDE
  3. TYLENOL [Concomitant]
     Active Substance: ACETAMINOPHEN
  4. ROXANOL [Concomitant]
     Active Substance: MORPHINE SULFATE
  5. OXYCODONE [Concomitant]
     Active Substance: OXYCODONE
  6. OMEPRAZOLE. [Concomitant]
     Active Substance: OMEPRAZOLE
  7. ATROPINE OHT DROP [Concomitant]
  8. LASIX [Concomitant]
     Active Substance: FUROSEMIDE
  9. DILTIAZEM. [Concomitant]
     Active Substance: DILTIAZEM
  10. LEVOTHYROXINE. [Concomitant]
     Active Substance: LEVOTHYROXINE
  11. SPIRONOLACTONE. [Concomitant]
     Active Substance: SPIRONOLACTONE
  12. ADEMPAS [Suspect]
     Active Substance: RIOCIGUAT
     Indication: PULMONARY ARTERIAL HYPERTENSION
     Route: 048
     Dates: start: 201401, end: 202003
  13. BISACODYL. [Concomitant]
     Active Substance: BISACODYL
  14. NARCAN [Concomitant]
     Active Substance: NALOXONE HYDROCHLORIDE
  15. GABAPENTIN. [Concomitant]
     Active Substance: GABAPENTIN
  16. NORCO [Concomitant]
     Active Substance: ACETAMINOPHEN\HYDROCODONE BITARTRATE
  17. MVI [Concomitant]
     Active Substance: VITAMINS
  18. LORAZEPAM. [Concomitant]
     Active Substance: LORAZEPAM
  19. LUBRICANT SURGICAL GEL [Concomitant]

REACTIONS (3)
  - Pain [None]
  - Acetabulum fracture [None]
  - Bedridden [None]

NARRATIVE: CASE EVENT DATE: 20200325
